FAERS Safety Report 7280450-9 (Version None)
Quarter: 2011Q1

REPORT INFORMATION
  Report Type: 
  Country: None (occurrence: None)
  Receive Date: 20110208
  Receipt Date: 20110202
  Transmission Date: 20110831
  Serious: No
  Sender: FDA-Public Use
  Company Number: BR-ELI_LILLY_AND_COMPANY-BR201101004517

PATIENT
  Sex: Male

DRUGS (2)
  1. BYETTA [Suspect]
     Indication: WEIGHT DECREASED
     Dosage: 5 UG, UNKNOWN
     Route: 065
     Dates: start: 20101101
  2. BYETTA [Suspect]
     Dosage: 5 UG, UNKNOWN
     Route: 065

REACTIONS (4)
  - MALAISE [None]
  - TACHYCARDIA [None]
  - INTENTIONAL DRUG MISUSE [None]
  - OFF LABEL USE [None]
